FAERS Safety Report 4696755-1 (Version None)
Quarter: 2005Q2

REPORT INFORMATION
  Report Type: 
  Country: None (occurrence: None)
  Receive Date: 20050620
  Receipt Date: 20050505
  Transmission Date: 20051028
  Serious: Yes (Hospitalization)
  Sender: FDA-Public Use
  Company Number: 2005000881

PATIENT
  Age: 64 Year
  Sex: Female

DRUGS (2)
  1. TARCEVA [Suspect]
     Dosage: (150 MG), ORAL
     Route: 048
  2. DEXAMETHASONE (DEXAMEETHASONE) [Concomitant]

REACTIONS (7)
  - ABDOMINAL PAIN [None]
  - CANDIDIASIS [None]
  - DEHYDRATION [None]
  - EROSIVE OESOPHAGITIS [None]
  - GASTRITIS [None]
  - NAUSEA [None]
  - VOMITING [None]
